FAERS Safety Report 18041939 (Version 1)
Quarter: 2020Q3

REPORT INFORMATION
  Report Type: Spontaneous
  Country: US (occurrence: US)
  Receive Date: 20200720
  Receipt Date: 20200720
  Transmission Date: 20201103
  Serious: No
  Sender: FDA-Public Use
  Company Number: US-CIPLA LTD.-2020US04533

PATIENT

DRUGS (7)
  1. ZIDOVUDINE. [Suspect]
     Active Substance: ZIDOVUDINE
     Dosage: UNK, 2 COURSE, THIRD TRIMESTER, AT A DAILY TOTAL DOSE OF 1
     Route: 042
  2. ATAZANAVIR. [Suspect]
     Active Substance: ATAZANAVIR
     Indication: ANTIRETROVIRAL THERAPY
     Dosage: UNK, AT A DAILY TOTAL DOSE OF 1
     Route: 048
  3. EMTRICITABINE/TENOFOVIR [Suspect]
     Active Substance: EMTRICITABINE\TENOFOVIR
     Indication: ANTIRETROVIRAL THERAPY
     Dosage: UNK, 1 COURSE, FIRST TRIMESTER, AT A DAILY TOTAL DOSE OF 1
     Route: 048
  4. ZIDOVUDINE. [Suspect]
     Active Substance: ZIDOVUDINE
     Indication: ANTIRETROVIRAL THERAPY
     Dosage: UNK, 1 COURSE, THIRD TRIMESTER, AT A DAILY TOTAL DOSE OF 2
     Route: 042
  5. RITONAVIR. [Suspect]
     Active Substance: RITONAVIR
     Indication: ANTIRETROVIRAL THERAPY
     Dosage: UNK, 1 COURSE, FIRST TRIMESTER, AT A DAILY TOTAL DOSE OF 1
     Route: 048
  6. DARUNAVIR AND COBICISTAT [Suspect]
     Active Substance: COBICISTAT\DARUNAVIR ETHANOLATE
     Indication: ANTIRETROVIRAL THERAPY
     Dosage: UNK, 1 COURSE, SECOND TRIMESTER, AT A DAILY TOTAL DOSE OF 1
     Route: 048
  7. DOLUTEGRAVIR [Suspect]
     Active Substance: DOLUTEGRAVIR
     Indication: ANTIRETROVIRAL THERAPY
     Dosage: UNK, 1 COURSE, SECOND TRIMESTER, AT A DAILY TOTAL DOSE OF 1
     Route: 048

REACTIONS (2)
  - Exposure during pregnancy [Unknown]
  - No adverse event [Unknown]
